FAERS Safety Report 9647994 (Version 3)
Quarter: 2013Q4

REPORT INFORMATION
  Report Type: Spontaneous
  Country: US (occurrence: US)
  Receive Date: 20131028
  Receipt Date: 20131108
  Transmission Date: 20140711
  Serious: No
  Sender: FDA-Public Use
  Company Number: US-PFIZER INC-2013167705

PATIENT
  Age: 59 Year
  Sex: Female
  Weight: 81.63 kg

DRUGS (4)
  1. LYRICA [Suspect]
     Indication: NEURALGIA
     Dosage: 75 MG, 3X/DAY
     Dates: end: 20131023
  2. ZOLOFT [Suspect]
     Dosage: UNK
  3. ADVIL [Concomitant]
  4. PRILOSEC [Concomitant]

REACTIONS (1)
  - Pain [Unknown]
